FAERS Safety Report 6525139-6 (Version None)
Quarter: 2009Q4

REPORT INFORMATION
  Report Type: 
  Country: None (occurrence: None)
  Receive Date: 20091223
  Receipt Date: 20091218
  Transmission Date: 20100525
  Serious: Yes (Death, Hospitalization, Other)
  Sender: FDA-Public Use
  Company Number: 2009SP042145

PATIENT
  Sex: Female

DRUGS (1)
  1. TEMODAL [Suspect]
     Indication: DRUG USE FOR UNKNOWN INDICATION
     Dosage: 400 MG
     Dates: start: 20090930

REACTIONS (4)
  - CEREBRAL HAEMORRHAGE [None]
  - PANCYTOPENIA [None]
  - SEPSIS [None]
  - TUMOUR HAEMORRHAGE [None]
